FAERS Safety Report 19419113 (Version 1)
Quarter: 2021Q2

REPORT INFORMATION
  Report Type: Spontaneous
  Country: PL (occurrence: PL)
  Receive Date: 20210615
  Receipt Date: 20210615
  Transmission Date: 20210717
  Serious: Yes (Other)
  Sender: FDA-Public Use
  Company Number: PL-MYLANLABS-2021M1034167

PATIENT
  Age: 62 Year
  Sex: Female

DRUGS (2)
  1. RIBOCICLIB. [Suspect]
     Active Substance: RIBOCICLIB
     Indication: BREAST CANCER METASTATIC
     Dosage: 600 MG (ON DAYS 1?21 WITH A SUBSEQUENT SEVEN?DAY BREAK)
     Route: 048
     Dates: start: 201911
  2. LETROZOLE. [Suspect]
     Active Substance: LETROZOLE
     Indication: BREAST CANCER METASTATIC
     Dosage: 2.5 MILLIGRAM, QD
     Route: 048
     Dates: start: 201911

REACTIONS (2)
  - Depression [Recovering/Resolving]
  - Neutropenia [Recovering/Resolving]
